FAERS Safety Report 7892143-5 (Version None)
Quarter: 2011Q4

REPORT INFORMATION
  Report Type: 
  Country: None (occurrence: None)
  Receive Date: 20111103
  Receipt Date: 20110815
  Transmission Date: 20120403
  Serious: No
  Sender: FDA-Public Use
  Company Number: US-AMGEN-USASP2011041557

PATIENT
  Age: 54 Year
  Sex: Female

DRUGS (6)
  1. ENBREL [Suspect]
     Indication: PRODUCT USED FOR UNKNOWN INDICATION
     Dosage: 50 MG, QWK
     Route: 058
  2. CALCIUM D                          /00944201/ [Concomitant]
     Dosage: UNK
  3. GABAPENTIN [Concomitant]
     Dosage: 100 MG, UNK
  4. ETODOLAC [Concomitant]
     Dosage: 200 MG, UNK
  5. VITAMIN D [Concomitant]
     Dosage: 1000 UNIT, UNK
  6. HYDROCODONE BITARTRATE [Concomitant]
     Dosage: UNK

REACTIONS (2)
  - FATIGUE [None]
  - RASH [None]
